FAERS Safety Report 9197311 (Version 3)
Quarter: 2013Q2

REPORT INFORMATION
  Report Type: Spontaneous
  Country: US (occurrence: US)
  Receive Date: 20130328
  Receipt Date: 20130510
  Transmission Date: 20140414
  Serious: Yes (Other)
  Sender: FDA-Public Use
  Company Number: PHEH2013US006992

PATIENT
  Sex: Male

DRUGS (9)
  1. EXELON PATCH [Suspect]
     Dosage: 9.5 MG, DAILY (1 DF, DAILY)
     Route: 062
  2. LEVOTHYROXINE [Concomitant]
  3. OMEPRAZOLE [Concomitant]
  4. LUTEIN [Concomitant]
  5. VITAMIN B12 [Concomitant]
  6. VITAMIN D [Concomitant]
  7. SIMVASTATIN [Concomitant]
  8. COENZYME Q10 [Concomitant]
  9. BABY ASPIRIN [Concomitant]
     Dosage: 80 MG, UNK

REACTIONS (2)
  - Macular degeneration [Unknown]
  - Application site erythema [Unknown]
